FAERS Safety Report 17273891 (Version 3)
Quarter: 2020Q1

REPORT INFORMATION
  Report Type: Report from Study
  Country: US (occurrence: US)
  Receive Date: 20200115
  Receipt Date: 20200206
  Transmission Date: 20200409
  Serious: Yes (Death, Other)
  Sender: FDA-Public Use
  Company Number: US-ACTELION-A-NJ2020-200199

PATIENT
  Age: 64 Year
  Sex: Male
  Weight: 154.2 kg

DRUGS (3)
  1. OPSUMIT [Suspect]
     Active Substance: MACITENTAN
     Indication: PULMONARY ARTERIAL HYPERTENSION
     Dosage: 10 MG, QD
     Route: 048
  2. REVATIO [Concomitant]
     Active Substance: SILDENAFIL CITRATE
  3. UPTRAVI [Suspect]
     Active Substance: SELEXIPAG
     Indication: PULMONARY ARTERIAL HYPERTENSION
     Dosage: 200 MCG, BID
     Route: 048

REACTIONS (15)
  - Hypersomnia [Unknown]
  - Constipation [Unknown]
  - Fall [Unknown]
  - Oropharyngeal discomfort [Unknown]
  - Tremor [Unknown]
  - Contusion [Unknown]
  - Rash [Not Recovered/Not Resolved]
  - Abdominal distension [Unknown]
  - Loss of personal independence in daily activities [Unknown]
  - Hepatic cirrhosis [Not Recovered/Not Resolved]
  - Emergency care [Unknown]
  - Wound [Unknown]
  - Death [Fatal]
  - Balance disorder [Unknown]
  - Hospice care [Recovered/Resolved]

NARRATIVE: CASE EVENT DATE: 20200102
